FAERS Safety Report 5815584-6 (Version None)
Quarter: 2008Q3

REPORT INFORMATION
  Report Type: 
  Country: None (occurrence: None)
  Receive Date: 20080718
  Receipt Date: 20080711
  Transmission Date: 20090109
  Serious: Yes (Hospitalization)
  Sender: FDA-Public Use
  Company Number: US-AMGEN-STX293916

PATIENT
  Sex: Female

DRUGS (1)
  1. ENBREL [Suspect]
     Indication: RHEUMATOID ARTHRITIS
     Route: 058
     Dates: start: 20000401

REACTIONS (7)
  - CLOSTRIDIAL INFECTION [None]
  - FRACTURE [None]
  - HEAD INJURY [None]
  - PELVIC FRACTURE [None]
  - PNEUMONIA [None]
  - PULMONARY THROMBOSIS [None]
  - ROAD TRAFFIC ACCIDENT [None]
